FAERS Safety Report 6422349-3 (Version None)
Quarter: 2009Q4

REPORT INFORMATION
  Report Type: 
  Country: None (occurrence: None)
  Receive Date: 20091030
  Receipt Date: 20091023
  Transmission Date: 20100525
  Serious: Yes (Hospitalization)
  Sender: FDA-Public Use
  Company Number: PHHO2009DE00841

PATIENT
  Sex: Male
  Weight: 65.6 kg

DRUGS (8)
  1. RAD 666 RAD+TAB [Suspect]
     Indication: METASTATIC RENAL CELL CARCINOMA
     Dosage: 10 MG, QD
     Route: 048
     Dates: start: 20081224, end: 20090107
  2. MORPHINE [Concomitant]
  3. ZOVIRAX [Concomitant]
  4. PANTOPRAZOLE SODIUM [Concomitant]
  5. AUGMENTIN [Concomitant]
  6. CLEXANE [Concomitant]
  7. METAMIZOLE [Concomitant]
  8. ACETAMINOPHEN [Concomitant]

REACTIONS (13)
  - CONFUSIONAL STATE [None]
  - COUGH [None]
  - DYSPHAGIA [None]
  - DYSPNOEA [None]
  - DYSURIA [None]
  - ENCEPHALOPATHY [None]
  - HEADACHE [None]
  - HYPOAESTHESIA [None]
  - HYPOPHAGIA [None]
  - MOUTH ULCERATION [None]
  - PYREXIA [None]
  - THROMBOCYTOPENIA [None]
  - TREMOR [None]
